FAERS Safety Report 4680048-2 (Version None)
Quarter: 2005Q2

REPORT INFORMATION
  Report Type: 
  Country: None (occurrence: None)
  Receive Date: 20050531
  Receipt Date: 20050518
  Transmission Date: 20051028
  Serious: Yes (Hospitalization)
  Sender: FDA-Public Use
  Company Number: 2005076809

PATIENT
  Age: 45 Year
  Sex: Female

DRUGS (3)
  1. EPIRUBICIN [Suspect]
     Indication: BREAST CANCER
     Dosage: (140 MG, CYCLIC), INTRAVENOUS
     Route: 042
  2. FLUOROURACIL [Suspect]
     Indication: BREAST CANCER
     Dosage: (CYCLIC), INTRAVENOUS
     Route: 042
  3. CYCLOPHOSPHAMIDE [Suspect]
     Indication: BREAST CANCER
     Dosage: (, CYCLIC), INTRAVENOUS
     Route: 042

REACTIONS (2)
  - ELECTROLYTE IMBALANCE [None]
  - HYPOKALAEMIA [None]
